FAERS Safety Report 8232847-8 (Version None)
Quarter: 2012Q1

REPORT INFORMATION
  Report Type: 
  Country: None (occurrence: None)
  Receive Date: 20120323
  Receipt Date: 20120314
  Transmission Date: 20120608
  Serious: Yes (Hospitalization, Other)
  Sender: FDA-Public Use
  Company Number: AU-ASTRAZENECA-2012SE15780

PATIENT
  Sex: Male

DRUGS (1)
  1. SEROQUEL [Suspect]
     Dosage: 5 G
     Route: 048

REACTIONS (7)
  - INTENTIONAL DRUG MISUSE [None]
  - PYREXIA [None]
  - LIP SWELLING [None]
  - OVERDOSE [None]
  - EYE SWELLING [None]
  - ABDOMINAL PAIN [None]
  - RASH MACULAR [None]
